FAERS Safety Report 7603855-2 (Version None)
Quarter: 2011Q3

REPORT INFORMATION
  Report Type: 
  Country: None (occurrence: None)
  Receive Date: 20110712
  Receipt Date: 20110708
  Transmission Date: 20111222
  Serious: Yes (Other)
  Sender: FDA-Public Use
  Company Number: US-PFIZER INC-2011154673

PATIENT
  Sex: Male
  Weight: 86.168 kg

DRUGS (2)
  1. CHANTIX [Suspect]
     Indication: SMOKING CESSATION THERAPY
     Dosage: UNK
     Route: 048
     Dates: start: 20101101
  2. CHANTIX [Suspect]
     Dosage: UNK
     Route: 048
     Dates: start: 20110703, end: 20110707

REACTIONS (2)
  - NIGHTMARE [None]
  - DEPRESSION [None]
